FAERS Safety Report 20445484 (Version 5)
Quarter: 2022Q3

REPORT INFORMATION
  Report Type: Report from Study
  Country: US (occurrence: US)
  Receive Date: 20220208
  Receipt Date: 20220825
  Transmission Date: 20221026
  Serious: Yes (Other)
  Sender: FDA-Public Use
  Company Number: US-Ipsen Biopharmaceuticals, Inc.-2022-02615

PATIENT
  Age: 58 Year
  Sex: Female

DRUGS (1)
  1. SOMATULINE DEPOT [Suspect]
     Active Substance: LANREOTIDE ACETATE
     Indication: Acromegaly
     Dosage: 60 MG/ 0.2 ML
     Route: 058
     Dates: start: 20210805

REACTIONS (4)
  - Urinary tract infection [Recovering/Resolving]
  - Vitamin D decreased [Recovering/Resolving]
  - Alopecia [Recovering/Resolving]
  - Skin irritation [Recovering/Resolving]
